FAERS Safety Report 5290513-5 (Version None)
Quarter: 2007Q2

REPORT INFORMATION
  Report Type: 
  Country: None (occurrence: None)
  Receive Date: 20070405
  Receipt Date: 20070405
  Transmission Date: 20071010
  Serious: No
  Sender: FDA-Public Use
  Company Number: None

PATIENT
  Age: 14 Month
  Sex: Male

DRUGS (2)
  1. SYNAGIS [Suspect]
     Dosage: 100 MG
  2. SYNAGIS [Suspect]

REACTIONS (1)
  - URTICARIA [None]
